FAERS Safety Report 10061669 (Version 2)
Quarter: 2014Q3

REPORT INFORMATION
  Report Type: Spontaneous
  Country: JP (occurrence: JP)
  Receive Date: 20140407
  Receipt Date: 20140731
  Transmission Date: 20150326
  Serious: No
  Sender: FDA-Public Use
  Company Number: JP-SA-2014SA038830

PATIENT
  Age: 77 Year
  Sex: Male

DRUGS (2)
  1. DELLEGRA [Suspect]
     Active Substance: FEXOFENADINE HYDROCHLORIDE\PSEUDOEPHEDRINE HYDROCHLORIDE
     Indication: RHINITIS ALLERGIC
     Dosage: DOSE- 4 TABLETS DAILY
     Route: 048
     Dates: start: 20140305, end: 20140306
  2. ZESULAN [Concomitant]
     Active Substance: MEQUITAZINE
     Route: 048
     Dates: start: 20140305, end: 20140504

REACTIONS (1)
  - Drug eruption [Unknown]

NARRATIVE: CASE EVENT DATE: 20140305
